FAERS Safety Report 14635667 (Version 1)
Quarter: 2018Q1

REPORT INFORMATION
  Report Type: Report from Study
  Country: DE (occurrence: DE)
  Receive Date: 20180314
  Receipt Date: 20180314
  Transmission Date: 20180509
  Serious: Yes (Hospitalization, Other)
  Sender: FDA-Public Use
  Company Number: DE-PFIZER INC-2018099393

PATIENT
  Sex: Female

DRUGS (4)
  1. CERTOLIZUMAB PEGOL [Suspect]
     Active Substance: CERTOLIZUMAB PEGOL
     Dosage: 200 MG, 2X/WEEK
     Dates: start: 2017, end: 20170320
  2. CERTOLIZUMAB PEGOL [Suspect]
     Active Substance: CERTOLIZUMAB PEGOL
     Indication: RHEUMATOID ARTHRITIS
     Dosage: 400 MG, UNK
     Dates: start: 20170109, end: 2017
  3. METHOTREXATE SODIUM. [Suspect]
     Active Substance: METHOTREXATE SODIUM
     Indication: RHEUMATOID ARTHRITIS
     Dosage: 5 MG, WEEKLY (QW)
     Dates: start: 201701
  4. NO SUBJECT DRUG [Suspect]
     Active Substance: UNSPECIFIED INGREDIENT
     Dosage: NO DOSE GIVEN

REACTIONS (8)
  - Folate deficiency [Unknown]
  - Haematuria [Unknown]
  - Rheumatoid arthritis [Unknown]
  - Leukopenia [Not Recovered/Not Resolved]
  - Nasopharyngitis [Unknown]
  - Drug-induced liver injury [Not Recovered/Not Resolved]
  - Hepatitis E [Unknown]
  - Plantar fascial fibromatosis [Unknown]

NARRATIVE: CASE EVENT DATE: 20170315
